FAERS Safety Report 14101762 (Version 1)
Quarter: 2017Q4

REPORT INFORMATION
  Report Type: Spontaneous
  Country: RO (occurrence: RO)
  Receive Date: 20171018
  Receipt Date: 20171018
  Transmission Date: 20180321
  Serious: Yes (Other)
  Sender: FDA-Public Use
  Company Number: PHHY2017RO149059

PATIENT
  Age: 29 Year
  Sex: Female

DRUGS (1)
  1. VOTUBIA [Suspect]
     Active Substance: EVEROLIMUS
     Indication: ANGIOMYOLIPOMA
     Dosage: 10 MG, QD
     Route: 048

REACTIONS (9)
  - Oedema [Recovered/Resolved]
  - Proteinuria [Recovered/Resolved]
  - Anaemia [Recovered/Resolved]
  - Epilepsy [Not Recovered/Not Resolved]
  - Dyslipidaemia [Not Recovered/Not Resolved]
  - Hypophosphataemia [Recovered/Resolved]
  - Hepatocellular injury [Recovered/Resolved]
  - Gamma-glutamyltransferase increased [Recovered/Resolved]
  - Ovarian cyst [Not Recovered/Not Resolved]
